FAERS Safety Report 7909043-4 (Version None)
Quarter: 2011Q4

REPORT INFORMATION
  Report Type: 
  Country: None (occurrence: None)
  Receive Date: 20111111
  Receipt Date: 20111101
  Transmission Date: 20120403
  Serious: Yes (Other)
  Sender: FDA-Public Use
  Company Number: IT-JNJFOC-20111101862

PATIENT
  Age: 4 Year
  Sex: Female

DRUGS (3)
  1. TOPIRAMATE [Suspect]
     Indication: COMPLEX PARTIAL SEIZURES
     Route: 048
  2. CARBAMAZEPINE [Suspect]
     Indication: CONVULSION
     Route: 065
  3. TOPIRAMATE [Suspect]
     Route: 048

REACTIONS (1)
  - STATUS EPILEPTICUS [None]
